FAERS Safety Report 17828306 (Version 1)
Quarter: 2020Q2

REPORT INFORMATION
  Report Type: Report from Study
  Country: US (occurrence: US)
  Receive Date: 20200527
  Receipt Date: 20200527
  Transmission Date: 20200714
  Serious: Yes (Other)
  Sender: FDA-Public Use
  Company Number: US-ROCHE-2255442

PATIENT
  Age: 50 Year
  Sex: Female
  Weight: 70.37 kg

DRUGS (2)
  1. OCREVUS [Suspect]
     Active Substance: OCRELIZUMAB
     Route: 042
     Dates: start: 2018
  2. OCREVUS [Suspect]
     Active Substance: OCRELIZUMAB
     Indication: MULTIPLE SCLEROSIS
     Route: 042
     Dates: start: 20181109

REACTIONS (7)
  - Pneumonia [Unknown]
  - Memory impairment [Recovered/Resolved]
  - Eczema [Not Recovered/Not Resolved]
  - Chest pain [Unknown]
  - Migraine [Unknown]
  - Alopecia [Unknown]
  - Fatigue [Not Recovered/Not Resolved]

NARRATIVE: CASE EVENT DATE: 201812
